FAERS Safety Report 4524487-9 (Version None)
Quarter: 2004Q4

REPORT INFORMATION
  Report Type: 
  Country: None (occurrence: None)
  Receive Date: 20041117
  Receipt Date: 20031006
  Transmission Date: 20050328
  Serious: Yes (Other)
  Sender: FDA-Public Use
  Company Number: US-JNJFOC-20031001590

PATIENT
  Age: 40 Year
  Sex: Female
  Weight: 55.3388 kg

DRUGS (1)
  1. LEVAQUIN [Suspect]
     Indication: EAR INFECTION
     Dosage: 500 MG, 1 IN 1 DAY, ORAL
     Route: 048

REACTIONS (4)
  - CONFUSIONAL STATE [None]
  - CONVULSION [None]
  - DIZZINESS [None]
  - INSOMNIA [None]
